FAERS Safety Report 8967935 (Version 1)
Quarter: 2012Q4

REPORT INFORMATION
  Report Type: 
  Country: US (occurrence: US)
  Receive Date: 20121218
  Receipt Date: 20121218
  Transmission Date: 20130627
  Serious: No
  Sender: FDA-Public Use
  Company Number: US-GLAXOSMITHKLINE-A0989546A

PATIENT
  Age: 68 Year
  Sex: Male

DRUGS (3)
  1. COREG CR [Suspect]
     Indication: HYPERTENSION
     Dosage: 2CAP Per day
     Route: 048
  2. TERAZOSIN [Concomitant]
  3. ATORVASTATIN [Concomitant]

REACTIONS (2)
  - Headache [Not Recovered/Not Resolved]
  - Blood pressure increased [Unknown]
